FAERS Safety Report 9159609 (Version 1)
Quarter: 2013Q1

REPORT INFORMATION
  Report Type: Spontaneous
  Country: US (occurrence: None)
  Receive Date: 20130312
  Receipt Date: 20130312
  Transmission Date: 20140127
  Serious: No
  Sender: FDA-Public Use
  Company Number: None

PATIENT
  Age: 71 Year
  Sex: Female
  Weight: 86.18 kg

DRUGS (6)
  1. JANUVIA 100 MG [Suspect]
     Indication: DIABETES MELLITUS
     Dosage: 1 TABLET ONCE DAILY PO
     Route: 048
     Dates: start: 20080101, end: 20130129
  2. METFORMIN [Concomitant]
  3. BABY ASPRIIN [Concomitant]
  4. LEVOTHYROXINE [Concomitant]
  5. MULTIVITAMIN [Concomitant]
  6. KRILL OIL [Concomitant]

REACTIONS (2)
  - Palpitations [None]
  - Insomnia [None]
